FAERS Safety Report 21075503 (Version 1)
Quarter: 2022Q3

REPORT INFORMATION
  Report Type: Other
  Country: US (occurrence: None)
  Receive Date: 20220713
  Receipt Date: 20220713
  Transmission Date: 20221027
  Serious: Yes (Death, Hospitalization)
  Sender: FDA-Public Use
  Company Number: US-ROCHE-3136223

PATIENT
  Sex: Female

DRUGS (1)
  1. OCREVUS [Suspect]
     Active Substance: OCRELIZUMAB
     Indication: Multiple sclerosis
     Dosage: DATES OF THERAPY: 17-OCT-2019, 29/JUN/2021, 28/DEC/2021
     Route: 065
     Dates: start: 20191001, end: 20211228

REACTIONS (1)
  - COVID-19 pneumonia [Fatal]
